FAERS Safety Report 11374708 (Version 1)
Quarter: 2015Q3

REPORT INFORMATION
  Report Type: Spontaneous
  Country: US (occurrence: None)
  Receive Date: 20150812
  Receipt Date: 20150812
  Transmission Date: 20151125
  Serious: Yes (Hospitalization, Disabling)
  Sender: FDA-Public Use
  Company Number: None

PATIENT
  Age: 17 Year
  Sex: Male
  Weight: 63.5 kg

DRUGS (1)
  1. NORDITROPIN [Suspect]
     Active Substance: SOMATROPIN
     Indication: GROWTH HORMONE DEFICIENCY
     Route: 030
     Dates: start: 20100715, end: 20150101

REACTIONS (4)
  - Altered state of consciousness [None]
  - Feeling abnormal [None]
  - Hypoglycaemia [None]
  - Tremor [None]

NARRATIVE: CASE EVENT DATE: 20140418
